FAERS Safety Report 21843969 (Version 2)
Quarter: 2023Q4

REPORT INFORMATION
  Report Type: Report from Study
  Country: US (occurrence: US)
  Receive Date: 20230110
  Receipt Date: 20231220
  Transmission Date: 20240110
  Serious: Yes (Hospitalization)
  Sender: FDA-Public Use
  Company Number: US-TAKEDA-2023TUS002428

PATIENT
  Age: 3 Year
  Sex: Male

DRUGS (12)
  1. TEDUGLUTIDE [Suspect]
     Active Substance: TEDUGLUTIDE
     Indication: Short-bowel syndrome
     Dosage: 0.5 MILLIGRAM, QD
     Route: 042
     Dates: start: 20210301
  2. TEDUGLUTIDE [Suspect]
     Active Substance: TEDUGLUTIDE
     Indication: Short-bowel syndrome
     Dosage: 0.5 MILLIGRAM, QD
     Route: 042
     Dates: start: 20210301
  3. TEDUGLUTIDE [Suspect]
     Active Substance: TEDUGLUTIDE
     Indication: Short-bowel syndrome
     Dosage: 0.5 MILLIGRAM, QD
     Route: 042
     Dates: start: 20210301
  4. TEDUGLUTIDE [Suspect]
     Active Substance: TEDUGLUTIDE
     Indication: Short-bowel syndrome
     Dosage: 0.5 MILLIGRAM, QD
     Route: 042
     Dates: start: 20210301
  5. FLUTICASONE [Concomitant]
     Active Substance: FLUTICASONE
     Dosage: 2 DOSAGE FORM, BID
     Route: 045
     Dates: start: 20220422
  6. DIAZEPAM [Concomitant]
     Active Substance: DIAZEPAM
     Indication: Seizure
     Dosage: 5 MILLIGRAM
     Route: 054
     Dates: start: 20200422
  7. DIAZEPAM [Concomitant]
     Active Substance: DIAZEPAM
     Dosage: 7.5 MILLIGRAM
     Route: 054
     Dates: start: 20221209
  8. OXYBUTYNIN [Concomitant]
     Active Substance: OXYBUTYNIN
     Indication: Spina bifida
     Dosage: 2 MILLIGRAM, BID
     Route: 048
     Dates: start: 20210625
  9. OXYBUTYNIN [Concomitant]
     Active Substance: OXYBUTYNIN
     Dosage: 3 MILLIGRAM, BID
     Route: 048
     Dates: start: 20221209
  10. HYDROCORTISONE [Concomitant]
     Active Substance: HYDROCORTISONE
     Indication: Dermatitis diaper
     Dosage: 1 DOSAGE FORM, BID
     Route: 061
     Dates: start: 20210625
  11. KEPPRA [Concomitant]
     Active Substance: LEVETIRACETAM
     Indication: Seizure
     Dosage: 226 MILLIGRAM, BID
     Route: 048
     Dates: start: 20230214
  12. LOPERAMIDE [Concomitant]
     Active Substance: LOPERAMIDE
     Indication: Diarrhoea
     Dosage: 1.5 MILLIGRAM, TID
     Route: 048
     Dates: start: 20221004

REACTIONS (6)
  - Alanine aminotransferase increased [Recovered/Resolved]
  - Diarrhoea [Recovered/Resolved]
  - Pyrexia [Recovered/Resolved]
  - Aspartate aminotransferase increased [Recovered/Resolved]
  - COVID-19 [Recovered/Resolved]
  - Vomiting [Recovered/Resolved]

NARRATIVE: CASE EVENT DATE: 20221204
